FAERS Safety Report 4437612-5 (Version None)
Quarter: 2004Q3

REPORT INFORMATION
  Report Type: 
  Country: None (occurrence: None)
  Receive Date: 20040827
  Receipt Date: 20040816
  Transmission Date: 20050211
  Serious: Yes (Hospitalization)
  Sender: FDA-Public Use
  Company Number: 2004PK01394

PATIENT
  Age: 57 Year
  Sex: Male

DRUGS (9)
  1. BELOC ZOK [Suspect]
  2. RENAGEL [Suspect]
     Indication: HYPERPHOSPHATAEMIA
     Dosage: 800 MG TID PO
     Route: 048
     Dates: start: 20030401
  3. NEURONTIN [Suspect]
     Dosage: 300 MG DAILY
  4. PHOS-EX [Concomitant]
  5. EINSALPHA [Concomitant]
  6. VIGANTOLETTEN [Concomitant]
  7. RESTEX [Concomitant]
  8. ROHYPNOL [Concomitant]
  9. MARCOUMAR [Concomitant]

REACTIONS (4)
  - CONDITION AGGRAVATED [None]
  - HYPERKERATOSIS [None]
  - MORPHOEA [None]
  - MOVEMENT DISORDER [None]
